FAERS Safety Report 9010914 (Version 2)
Quarter: 2013Q1

REPORT INFORMATION
  Report Type: Spontaneous
  Country: US (occurrence: US)
  Receive Date: 20130109
  Receipt Date: 20130116
  Transmission Date: 20140127
  Serious: Yes (Hospitalization)
  Sender: FDA-Public Use
  Company Number: US-BAYER-2012-106353

PATIENT
  Age: 76 Year
  Sex: Female
  Weight: 113.9 kg

DRUGS (6)
  1. XARELTO [Suspect]
     Indication: THROMBOSIS PROPHYLAXIS
     Dosage: 10 MG, QD
     Route: 048
     Dates: start: 20120914, end: 20120916
  2. XARELTO [Suspect]
     Indication: HIP ARTHROPLASTY
  3. CELECOXIB [Suspect]
     Indication: PRODUCT USED FOR UNKNOWN INDICATION
     Dosage: 100 MG, BID
     Route: 065
  4. CELECOXIB [Suspect]
     Indication: PRODUCT USED FOR UNKNOWN INDICATION
     Dosage: 100 MG, BID
     Route: 048
  5. ACETYLSALICYLIC ACID({=100 MG) [Suspect]
     Indication: PRODUCT USED FOR UNKNOWN INDICATION
     Dosage: 81 MG, QD
  6. KETOROLAC [Concomitant]
     Dosage: 30 MG, UNK
     Route: 042
     Dates: start: 20120913, end: 20120913

REACTIONS (7)
  - Gastrointestinal haemorrhage [Recovered/Resolved]
  - Dyspnoea [Recovered/Resolved]
  - Troponin increased [Recovered/Resolved]
  - Haematocrit decreased [None]
  - Haemoglobin decreased [None]
  - Blood creatinine increased [None]
  - Platelet count decreased [None]
